FAERS Safety Report 16859789 (Version 1)
Quarter: 2019Q3

REPORT INFORMATION
  Report Type: Spontaneous
  Country: US (occurrence: US)
  Receive Date: 20190927
  Receipt Date: 20190927
  Transmission Date: 20191005
  Serious: Yes (Hospitalization)
  Sender: FDA-Public Use
  Company Number: US-JNJFOC-20190934291

PATIENT
  Age: 86 Year
  Sex: Female
  Weight: 44 kg

DRUGS (3)
  1. LISINOPRIL. [Concomitant]
     Active Substance: LISINOPRIL
     Indication: HYPERTENSION
     Dosage: 5 MG, QD
  2. CLINDAMYCIN. [Suspect]
     Active Substance: CLINDAMYCIN
     Indication: LOCALISED INFECTION
     Dosage: UNK
     Route: 065
  3. IMBRUVICA [Suspect]
     Active Substance: IBRUTINIB
     Indication: WALDENSTROM^S MACROGLOBULINAEMIA
     Dosage: 280 MG, QOD
     Route: 065

REACTIONS (3)
  - Localised infection [Recovered/Resolved]
  - Peripheral swelling [Not Recovered/Not Resolved]
  - Clostridium difficile infection [Recovered/Resolved]

NARRATIVE: CASE EVENT DATE: 201909
